FAERS Safety Report 18264073 (Version 4)
Quarter: 2020Q4

REPORT INFORMATION
  Report Type: Spontaneous
  Country: US (occurrence: US)
  Receive Date: 20200914
  Receipt Date: 20201218
  Transmission Date: 20210113
  Serious: Yes (Other)
  Sender: FDA-Public Use
  Company Number: US-PFIZER INC-2020352155

PATIENT
  Age: 59 Year

DRUGS (2)
  1. FLECTOR [Suspect]
     Active Substance: DICLOFENAC EPOLAMINE
     Indication: INTERVERTEBRAL DISC DEGENERATION
     Dosage: 1 PATCH TO SKIN THREE TIMES A DAY
  2. FLECTOR [Suspect]
     Active Substance: DICLOFENAC EPOLAMINE
     Indication: PAIN
     Dosage: 1 PATCH TO SKIN TO MOST PAINFUL AREA TWICE A DAY
     Route: 062

REACTIONS (3)
  - Therapeutic product effect incomplete [Unknown]
  - Prescribed overdose [Unknown]
  - Diabetes mellitus [Unknown]
